FAERS Safety Report 7653999-4 (Version None)
Quarter: 2011Q3

REPORT INFORMATION
  Report Type: 
  Country: None (occurrence: None)
  Receive Date: 20110803
  Receipt Date: 20110720
  Transmission Date: 20111222
  Serious: Yes (Other)
  Sender: FDA-Public Use
  Company Number: PHHY2011AR19557

PATIENT
  Sex: Male

DRUGS (1)
  1. DIOVAN [Suspect]
     Indication: HYPERTENSION
     Dosage: 160 MG VALSARTAN, DAILY
     Dates: start: 20090601, end: 20110115

REACTIONS (2)
  - HYPERTENSION [None]
  - VENOUS OCCLUSION [None]
